FAERS Safety Report 18905632 (Version 1)
Quarter: 2021Q1

REPORT INFORMATION
  Report Type: Spontaneous
  Country: US (occurrence: US)
  Receive Date: 20210217
  Receipt Date: 20210217
  Transmission Date: 20210420
  Serious: Yes (Death, Other)
  Sender: FDA-Public Use
  Company Number: US-AMGEN-USASP2021023888

PATIENT

DRUGS (2)
  1. EPOETIN ALFA [Suspect]
     Active Substance: ERYTHROPOIETIN
     Indication: PROPHYLAXIS
     Dosage: 1000 U/KG, EVERY OTHER DAY
     Route: 042
  2. EPOETIN ALFA [Suspect]
     Active Substance: ERYTHROPOIETIN
     Dosage: 400 U/KG
     Route: 058

REACTIONS (2)
  - Acute kidney injury [Unknown]
  - Death [Fatal]
